FAERS Safety Report 8299884-9 (Version None)
Quarter: 2012Q2

REPORT INFORMATION
  Report Type: 
  Country: None (occurrence: None)
  Receive Date: 20120419
  Receipt Date: 20120413
  Transmission Date: 20120825
  Serious: Yes (Death, Hospitalization, Other)
  Sender: FDA-Public Use
  Company Number: US-AMGEN-USASP2011009965

PATIENT
  Age: 58 Year
  Sex: Male
  Weight: 86.621 kg

DRUGS (2)
  1. XGEVA [Suspect]
     Indication: METASTASES TO BONE
     Route: 058
     Dates: start: 20110209
  2. CALCIUM CARBONATE [Concomitant]
     Route: 048

REACTIONS (6)
  - HYPOCALCAEMIA [None]
  - MENTAL STATUS CHANGES [None]
  - CONVULSION [None]
  - HYPERKALAEMIA [None]
  - HOSPICE CARE [None]
  - DEATH [None]
